FAERS Safety Report 23181886 (Version 2)
Quarter: 2023Q4

REPORT INFORMATION
  Report Type: Report from Study
  Country: IT (occurrence: IT)
  Receive Date: 20231114
  Receipt Date: 20231115
  Transmission Date: 20240109
  Serious: Yes (Hospitalization)
  Sender: FDA-Public Use
  Company Number: None

PATIENT
  Age: 97 Year
  Sex: Female

DRUGS (9)
  1. LINAGLIPTIN [Suspect]
     Active Substance: LINAGLIPTIN
     Indication: Type 2 diabetes mellitus
     Route: 048
  2. INSULIN GLARGINE [Suspect]
     Active Substance: INSULIN GLARGINE
     Indication: Type 2 diabetes mellitus
     Dosage: UNIT OF MEASURE:  INTERNATIONAL UNITS LESS THAN 100
     Route: 058
  3. TICLOPIDINE [Concomitant]
     Active Substance: TICLOPIDINE
     Indication: Thrombosis prophylaxis
     Route: 048
  4. SIMVASTATIN [Concomitant]
     Active Substance: SIMVASTATIN
     Indication: Hypercholesterolaemia
     Route: 048
  5. AMLODIPINE [Concomitant]
     Active Substance: AMLODIPINE BESYLATE
     Indication: Hypertension
     Route: 048
  6. FUROSEMIDE [Concomitant]
     Active Substance: FUROSEMIDE
     Indication: Chronic kidney disease
     Route: 048
  7. FERRO GRAD FOLIC [Concomitant]
     Indication: Normocytic anaemia
     Dosage: DOSE: 1?UNIT OF MEASURE: POSOLOGICAL UNIT (AS REPORTED)
     Route: 048
  8. LEVOTHYROXINE SODIUM [Concomitant]
     Active Substance: LEVOTHYROXINE SODIUM
     Indication: Hypothyroidism
     Route: 048
  9. FOLINA [Concomitant]
     Indication: Normocytic anaemia
     Dosage: DOSAGE: 1?UNIT OF MEASUREMENT: POSOLOGICAL UNIT (AS REPORTED)
     Route: 048

REACTIONS (3)
  - Diarrhoea [Recovered/Resolved]
  - Sopor [Recovered/Resolved]
  - Hypoglycaemia [Recovered/Resolved]

NARRATIVE: CASE EVENT DATE: 20230319
